FAERS Safety Report 10180086 (Version 1)
Quarter: 2014Q2

REPORT INFORMATION
  Report Type: Spontaneous
  Country: US (occurrence: US)
  Receive Date: 20140519
  Receipt Date: 20140519
  Transmission Date: 20141212
  Serious: No
  Sender: FDA-Public Use
  Company Number: US-AMGEN INC.-USASP2013076836

PATIENT
  Age: 71 Year
  Sex: Female

DRUGS (6)
  1. PROLIA [Suspect]
     Indication: OSTEOPOROSIS POSTMENOPAUSAL
     Dosage: UNK
     Route: 065
     Dates: start: 201309
  2. ATORVASTATIN [Concomitant]
     Indication: BLOOD CHOLESTEROL
  3. BUMEX [Concomitant]
  4. FLONASE                            /00908302/ [Concomitant]
  5. AZELASTINE [Concomitant]
  6. VITAMINS                           /00067501/ [Concomitant]

REACTIONS (2)
  - Groin pain [Not Recovered/Not Resolved]
  - Pain in extremity [Not Recovered/Not Resolved]
